FAERS Safety Report 7570748-9 (Version None)
Quarter: 2011Q2

REPORT INFORMATION
  Report Type: 
  Country: None (occurrence: None)
  Receive Date: 20110624
  Receipt Date: 20110611
  Transmission Date: 20111010
  Serious: Yes (Hospitalization)
  Sender: FDA-Public Use
  Company Number: US-ELI_LILLY_AND_COMPANY-US201012001610

PATIENT
  Sex: Female
  Weight: 109.75 kg

DRUGS (5)
  1. LANTUS [Concomitant]
     Dosage: UNK, UNKNOWN
     Route: 065
  2. CYMBALTA [Concomitant]
     Dosage: UNK, UNKNOWN
     Route: 065
  3. PENTASA [Concomitant]
     Dosage: UNK, UNKNOWN
     Route: 065
  4. METFORMIN HCL [Concomitant]
     Dosage: UNK, UNKNOWN
     Route: 065
  5. FORTEO [Suspect]
     Indication: OSTEOPOROSIS
     Dosage: 20 UG, DAILY (1/D)
     Route: 058
     Dates: start: 20100701

REACTIONS (4)
  - ARTHRALGIA [None]
  - URINARY TRACT INFECTION [None]
  - HOSPITALISATION [None]
  - BACK PAIN [None]
